FAERS Safety Report 6139722-3 (Version None)
Quarter: 2009Q2

REPORT INFORMATION
  Report Type: 
  Country: None (occurrence: None)
  Receive Date: 20090401
  Receipt Date: 20090323
  Transmission Date: 20091009
  Serious: Yes (Other)
  Sender: FDA-Public Use
  Company Number: GB-ASTRAZENECA-2009GB00750

PATIENT
  Age: 26 Year
  Sex: Male

DRUGS (1)
  1. SEROQUEL [Suspect]
     Dosage: 100 MG
     Route: 048
     Dates: start: 20090321

REACTIONS (3)
  - JAUNDICE [None]
  - LETHARGY [None]
  - VIRAL INFECTION [None]
